FAERS Safety Report 19008149 (Version 1)
Quarter: 2021Q1

REPORT INFORMATION
  Report Type: Spontaneous
  Country: DE (occurrence: DE)
  Receive Date: 20210316
  Receipt Date: 20210316
  Transmission Date: 20210420
  Serious: Yes (Hospitalization)
  Sender: FDA-Public Use
  Company Number: DE-ROCHE-2785307

PATIENT
  Age: 13 Month
  Sex: Male
  Weight: 7.7 kg

DRUGS (7)
  1. PREDNISOLON [Suspect]
     Active Substance: PREDNISOLONE
     Indication: LIVER TRANSPLANT
     Route: 048
     Dates: start: 201712
  2. COLECALCIFEROL [Concomitant]
     Active Substance: CHOLECALCIFEROL
     Indication: PROPHYLAXIS
     Dosage: DAILY DOSE: 500 IU INTERNATIONAL UNIT(S) EVERY DAYS
     Route: 048
     Dates: start: 201708
  3. VALGANCICLOVIR. [Suspect]
     Active Substance: VALGANCICLOVIR
     Indication: ANTIVIRAL PROPHYLAXIS
     Route: 048
     Dates: start: 201712
  4. CITRULLINE [Concomitant]
     Active Substance: CITRULLINE
     Dosage: 600MG ? 1200MG ? 600MG
     Route: 048
     Dates: start: 201708
  5. MODIGRAF [Suspect]
     Active Substance: TACROLIMUS
     Indication: LIVER TRANSPLANT
     Dosage: DAILY DOSE: 1.6 MG MILLGRAM(S) EVERY DAYS 2 SEPARATED DOSES
     Route: 048
     Dates: start: 201712, end: 20180921
  6. L?ARGININE [Concomitant]
     Active Substance: ARGININE
     Dosage: DAILY DOSE: 1000 MG MILLGRAM(S) EVERY DAYS 2 SEPARATED DOSES
     Route: 048
     Dates: start: 201708
  7. URSOFALK [Concomitant]
     Active Substance: URSODIOL
     Dosage: DAILY DOSE: 160 MG MILLGRAM(S) EVERY DAYS 2 SEPARATED DOSES
     Route: 048
     Dates: start: 201712

REACTIONS (4)
  - Upper respiratory tract infection [Recovered/Resolved]
  - Cough [Recovered/Resolved]
  - Pyrexia [Recovered/Resolved]
  - Vomiting [Recovered/Resolved]

NARRATIVE: CASE EVENT DATE: 20180920
